FAERS Safety Report 8836701 (Version 1)
Quarter: 2012Q4

REPORT INFORMATION
  Report Type: Spontaneous
  Country: GB (occurrence: None)
  Receive Date: 20121010
  Receipt Date: 20121010
  Transmission Date: 20130627
  Serious: Yes (Hospitalization, Other)
  Sender: FDA-Public Use
  Company Number: GB-DEXPHARM-20121311

PATIENT
  Age: 89 Year
  Sex: Male

DRUGS (1)
  1. OMEPRAZOLE [Suspect]
     Indication: EPIGASTRIC ACHE
     Route: 048
     Dates: start: 20120830, end: 20120918

REACTIONS (8)
  - Tubulointerstitial nephritis [None]
  - Diarrhoea [None]
  - Chills [None]
  - Faecal incontinence [None]
  - Lethargy [None]
  - Renal failure acute [None]
  - Decreased appetite [None]
  - Haemodialysis [None]
